FAERS Safety Report 16709613 (Version 1)
Quarter: 2019Q3

REPORT INFORMATION
  Report Type: Spontaneous
  Country: FR (occurrence: FR)
  Receive Date: 20190816
  Receipt Date: 20190816
  Transmission Date: 20191004
  Serious: Yes (Hospitalization, Other)
  Sender: FDA-Public Use
  Company Number: FR-MYLANLABS-2019M1075199

PATIENT
  Age: 41 Year
  Sex: Female
  Weight: 47 kg

DRUGS (5)
  1. THERALENE [Suspect]
     Active Substance: TRIMEPRAZINE
     Indication: PRODUCT USED FOR UNKNOWN INDICATION
     Dosage: 75 DOSAGE FORM, TOTAL
     Route: 048
     Dates: start: 20190207, end: 20190207
  2. LORMETAZEPAM [Suspect]
     Active Substance: LORMETAZEPAM
     Indication: PRODUCT USED FOR UNKNOWN INDICATION
     Dosage: 112 MILLIGRAM, TOTAL
     Route: 048
     Dates: start: 20190207, end: 20190207
  3. VENLAFAXINE [Suspect]
     Active Substance: VENLAFAXINE HYDROCHLORIDE
     Indication: PRODUCT USED FOR UNKNOWN INDICATION
     Dosage: 1500 MILLIGRAM, TOTAL
     Route: 048
     Dates: start: 20190207, end: 20190207
  4. ARIPIPRAZOLE. [Suspect]
     Active Substance: ARIPIPRAZOLE
     Indication: PRODUCT USED FOR UNKNOWN INDICATION
     Dosage: 540 MILLIGRAM, TOTAL
     Route: 048
     Dates: start: 20190207, end: 20190207
  5. SERESTA [Suspect]
     Active Substance: OXAZEPAM
     Indication: PRODUCT USED FOR UNKNOWN INDICATION
     Dosage: 80 DOSAGE FORM, TOTAL
     Route: 048
     Dates: start: 20190207, end: 20190207

REACTIONS (8)
  - Hypothermia [Recovered/Resolved]
  - Bladder dilatation [Recovered/Resolved]
  - Hypotonia [Recovering/Resolving]
  - Pneumonia aspiration [Recovered/Resolved]
  - Poisoning deliberate [Unknown]
  - Sedation [Recovering/Resolving]
  - Rhabdomyolysis [Recovered/Resolved]
  - Bradycardia [Recovered/Resolved]

NARRATIVE: CASE EVENT DATE: 20190207
